FAERS Safety Report 4679216-5 (Version None)
Quarter: 2005Q2

REPORT INFORMATION
  Report Type: 
  Country: None (occurrence: None)
  Receive Date: 20050311
  Receipt Date: 20050311
  Transmission Date: 20051028
  Serious: Yes (Other)
  Sender: FDA-Public Use
  Company Number: None

PATIENT
  Age: 47 Year
  Sex: Female

DRUGS (1)
  1. NEURONTIN [Suspect]
     Indication: SCHIZOAFFECTIVE DISORDER
     Dosage: TWO BID PO
     Route: 048

REACTIONS (5)
  - DISTURBANCE IN ATTENTION [None]
  - EYE SWELLING [None]
  - MEMORY IMPAIRMENT [None]
  - SLEEP DISORDER [None]
  - THINKING ABNORMAL [None]
